FAERS Safety Report 7574948-3 (Version None)
Quarter: 2011Q2

REPORT INFORMATION
  Report Type: 
  Country: None (occurrence: None)
  Receive Date: 20110627
  Receipt Date: 20110614
  Transmission Date: 20111010
  Serious: Yes (Hospitalization)
  Sender: FDA-Public Use
  Company Number: BR-ELI_LILLY_AND_COMPANY-BR201105005996

PATIENT
  Sex: Female
  Weight: 45 kg

DRUGS (13)
  1. REUQUINOL [Concomitant]
     Indication: MUSCULOSKELETAL PAIN
     Dosage: 400 MG, QD
     Route: 065
  2. CILOSTAZOL [Concomitant]
     Indication: ANGIOPATHY
     Dosage: 100 MG, QD
     Route: 065
  3. FORTEO [Suspect]
     Dosage: UNK, UNKNOWN
     Route: 065
  4. OSCAL D                            /00944201/ [Concomitant]
     Dosage: UNK, BID
     Route: 065
  5. ACETAMINOPHEN [Concomitant]
     Dosage: 500 MG, TID
     Route: 065
  6. CLONAZEPAM [Concomitant]
     Dosage: UNK UNK, UNKNOWN
     Route: 065
  7. ATENOLOL [Concomitant]
     Indication: HYPERTENSION
     Dosage: 25 MG, QD
     Route: 065
  8. OMEPRAZOLE [Concomitant]
     Dosage: 40 MG, UNKNOWN
  9. PREDNISONE [Concomitant]
     Indication: MUSCULOSKELETAL PAIN
     Dosage: 5 MG, QD
     Route: 065
  10. CAPTOPRIL [Concomitant]
     Indication: HYPERTENSION
     Dosage: 50 MG, QD
     Route: 065
  11. VITAMIN D [Concomitant]
     Dosage: UNK, QD
     Route: 065
  12. FORTEO [Suspect]
     Indication: OSTEOPOROSIS
     Dosage: UNK, UNKNOWN
     Route: 065
     Dates: start: 20100101, end: 20110501
  13. TANDRILAX [Concomitant]
     Dosage: UNK, UNKNOWN
     Route: 065

REACTIONS (3)
  - HERNIA [None]
  - FEELING ABNORMAL [None]
  - INTESTINAL OBSTRUCTION [None]
